FAERS Safety Report 8210059-1 (Version None)
Quarter: 2012Q1

REPORT INFORMATION
  Report Type: 
  Country: None (occurrence: None)
  Receive Date: 20120314
  Receipt Date: 20120202
  Transmission Date: 20120608
  Serious: No
  Sender: FDA-Public Use
  Company Number: US-ASTRAZENECA-2012SE07801

PATIENT
  Age: 63 Year
  Sex: Female

DRUGS (2)
  1. TOPROL-XL [Suspect]
     Route: 048
  2. CRESTOR [Suspect]
     Route: 048

REACTIONS (3)
  - BLOOD TRIGLYCERIDES INCREASED [None]
  - DRUG DOSE OMISSION [None]
  - BLOOD CHOLESTEROL INCREASED [None]
